FAERS Safety Report 23127432 (Version 1)
Quarter: 2023Q4

REPORT INFORMATION
  Report Type: Spontaneous
  Country: BA (occurrence: BA)
  Receive Date: 20231031
  Receipt Date: 20231031
  Transmission Date: 20240109
  Serious: Yes (Other)
  Sender: FDA-Public Use
  Company Number: BA-STRIDES ARCOLAB LIMITED-2023SP016218

PATIENT
  Age: 57 Year
  Sex: Male

DRUGS (4)
  1. CARBOPLATIN [Suspect]
     Active Substance: CARBOPLATIN
     Indication: Small cell lung cancer extensive stage
     Dosage: UNK, CYCLICAL (AUC 5 ON DAY 1)
     Route: 042
     Dates: start: 201903
  2. CARBOPLATIN [Suspect]
     Active Substance: CARBOPLATIN
     Dosage: UNK, CYCLICAL (DOSE OF CARBOPLATIN WAS REDUCED BY 25% DUE TO NEUTROPENIA)
     Route: 042
     Dates: start: 2019
  3. ETOPOSIDE [Suspect]
     Active Substance: ETOPOSIDE
     Indication: Small cell lung cancer extensive stage
     Dosage: 100 MILLIGRAM/SQ. METER, CYCLICAL (ON DAYS 1-3)
     Route: 042
     Dates: start: 201903
  4. ATEZOLIZUMAB [Suspect]
     Active Substance: ATEZOLIZUMAB
     Indication: Small cell lung cancer extensive stage
     Dosage: 1200 MILLIGRAM, CYCLICAL (ON DAYS 1)
     Route: 042
     Dates: start: 201903, end: 202102

REACTIONS (6)
  - Hyperglycaemia [Unknown]
  - Neutropenia [Unknown]
  - Dysgeusia [Unknown]
  - Fatigue [Unknown]
  - Rash [Unknown]
  - Off label use [Unknown]

NARRATIVE: CASE EVENT DATE: 20190101
